FAERS Safety Report 23635015 (Version 2)
Quarter: 2024Q1

REPORT INFORMATION
  Report Type: Spontaneous
  Country: TW (occurrence: TW)
  Receive Date: 20240315
  Receipt Date: 20240319
  Transmission Date: 20240410
  Serious: Yes (Other)
  Sender: FDA-Public Use
  Company Number: TW-009507513-2403TWN003773

PATIENT
  Age: 54 Year
  Sex: Male

DRUGS (8)
  1. PEMBROLIZUMAB [Suspect]
     Active Substance: PEMBROLIZUMAB
     Indication: Squamous cell carcinoma
     Dosage: 200 MILLIGRAM
     Dates: start: 202103, end: 202108
  2. PEMBROLIZUMAB [Suspect]
     Active Substance: PEMBROLIZUMAB
     Indication: Lung adenocarcinoma
     Dosage: 200 MILLIGRAM
     Dates: start: 202109
  3. PEMBROLIZUMAB [Suspect]
     Active Substance: PEMBROLIZUMAB
     Dosage: 200 MILLIGRAM
     Dates: start: 202202
  4. PEMBROLIZUMAB [Suspect]
     Active Substance: PEMBROLIZUMAB
     Dosage: 200 MILLIGRAM
     Dates: start: 2022
  5. CARBOPLATIN [Suspect]
     Active Substance: CARBOPLATIN
     Indication: Squamous cell carcinoma
     Dosage: UNK
     Dates: start: 202103, end: 202108
  6. CARBOPLATIN [Suspect]
     Active Substance: CARBOPLATIN
     Indication: Lung adenocarcinoma
  7. PACLITAXEL [Suspect]
     Active Substance: PACLITAXEL
     Indication: Squamous cell carcinoma
     Dosage: UNK
     Dates: start: 202103, end: 202108
  8. PACLITAXEL [Suspect]
     Active Substance: PACLITAXEL
     Indication: Lung adenocarcinoma

REACTIONS (3)
  - Lung lobectomy [Unknown]
  - Lymphadenectomy [Unknown]
  - RET gene fusion positive [Unknown]

NARRATIVE: CASE EVENT DATE: 20210421
